FAERS Safety Report 6151443-X (Version None)
Quarter: 2009Q2

REPORT INFORMATION
  Report Type: 
  Country: None (occurrence: None)
  Receive Date: 20090410
  Receipt Date: 20090402
  Transmission Date: 20091009
  Serious: Yes (Death)
  Sender: FDA-Public Use
  Company Number: US-BIOGENIDEC-2009BI008435

PATIENT
  Age: 74 Year
  Sex: Female

DRUGS (9)
  1. AVONEX [Suspect]
     Indication: MULTIPLE SCLEROSIS
     Route: 030
  2. AVONEX [Suspect]
     Route: 030
     Dates: start: 20060801
  3. DITROPAN [Concomitant]
     Indication: DRUG USE FOR UNKNOWN INDICATION
  4. SANCTURA [Concomitant]
     Indication: DRUG USE FOR UNKNOWN INDICATION
  5. INDERAL [Concomitant]
     Indication: DRUG USE FOR UNKNOWN INDICATION
  6. SYNTHROID [Concomitant]
     Indication: DRUG USE FOR UNKNOWN INDICATION
  7. KLONOPIN [Concomitant]
     Indication: DRUG USE FOR UNKNOWN INDICATION
  8. CATAPRES [Concomitant]
     Indication: DRUG USE FOR UNKNOWN INDICATION
  9. TRAMADOL [Concomitant]
     Indication: DRUG USE FOR UNKNOWN INDICATION

REACTIONS (9)
  - ASTHENIA [None]
  - BACTERIAL CULTURE POSITIVE [None]
  - BLOOD SODIUM DECREASED [None]
  - DECUBITUS ULCER [None]
  - DYSPHAGIA [None]
  - HYPOTENSION [None]
  - MULTIPLE SCLEROSIS [None]
  - SECONDARY PROGRESSIVE MULTIPLE SCLEROSIS [None]
  - TRIGEMINAL NEURALGIA [None]
